FAERS Safety Report 6653696-8 (Version None)
Quarter: 2010Q1

REPORT INFORMATION
  Report Type: 
  Country: None (occurrence: None)
  Receive Date: 20100326
  Receipt Date: 20090601
  Transmission Date: 20100710
  Serious: Yes (Other)
  Sender: FDA-Public Use
  Company Number: MX-PFIZER INC-2009221919

PATIENT
  Age: 59 Year
  Sex: Male
  Weight: 88 kg

DRUGS (12)
  1. IRINOTECAN HCL [Suspect]
     Indication: COLORECTAL CANCER
     Dosage: 220 MG, EVERY 2 WEEKS
     Route: 042
     Dates: start: 20080212, end: 20090508
  2. FLUOROURACIL [Suspect]
     Indication: COLORECTAL CANCER
     Dosage: 480 MG, EVERY 2 WEEKS
     Route: 040
     Dates: start: 20080212, end: 20090508
  3. FLUOROURACIL [Suspect]
     Dosage: 2900 MG, EVERY 2 WEEKS
     Route: 042
     Dates: start: 20080212, end: 20090510
  4. CALCIUM FOLINATE [Suspect]
     Indication: COLORECTAL CANCER
     Dosage: 250 MG, EVERY 2 WEEKS
     Route: 042
     Dates: start: 20080212, end: 20090508
  5. BLINDED *NO SUBJECT DRUG [Suspect]
     Indication: COLORECTAL CANCER
     Dosage: 37.5 MG, 1X/DAY
     Route: 048
     Dates: start: 20080212, end: 20090430
  6. BLINDED *PLACEBO [Suspect]
     Indication: COLORECTAL CANCER
     Dosage: 37.5 MG, 1X/DAY
     Route: 048
     Dates: start: 20080212, end: 20090430
  7. BLINDED SUNITINIB MALATE [Suspect]
     Indication: COLORECTAL CANCER
     Dosage: 37.5 MG, 1X/DAY
     Route: 048
     Dates: start: 20080212, end: 20090430
  8. GLIBENCLAMIDE [Concomitant]
     Indication: DIABETES MELLITUS
     Dosage: 5 MG, 3X/DAY
     Route: 048
     Dates: start: 20070101
  9. CAPTOPRIL [Concomitant]
     Indication: HYPERTENSION
     Dosage: 25 MG, 2X/DAY
     Route: 048
     Dates: start: 20070101
  10. CIPROFLOXACIN [Concomitant]
     Indication: DIARRHOEA
     Dosage: 500 MG, 2X/DAY
     Route: 048
     Dates: start: 20090509
  11. FILGRASTIM [Concomitant]
     Indication: LEUKOPENIA
     Dosage: 300 UG, 1X/DAY
     Route: 048
     Dates: start: 20090510
  12. OMEPRAZOLE [Concomitant]
     Indication: PROPHYLAXIS
     Dosage: 20 MG, 1X/DAY
     Route: 048
     Dates: start: 20090409

REACTIONS (2)
  - DEVICE RELATED INFECTION [None]
  - NEUTROPENIA [None]
